FAERS Safety Report 5023307-6 (Version None)
Quarter: 2006Q2

REPORT INFORMATION
  Report Type: 
  Country: None (occurrence: None)
  Receive Date: 20060502
  Receipt Date: 20050427
  Transmission Date: 20061013
  Serious: Yes (Hospitalization)
  Sender: FDA-Public Use
  Company Number: PERD20050002

PATIENT
  Age: 48 Year
  Sex: Male

DRUGS (7)
  1. PERCODAN [Suspect]
     Indication: PAIN
     Dosage: 1 TAB PRN PO
     Route: 048
     Dates: start: 20050406, end: 20050411
  2. PEGASYS [Suspect]
     Indication: HEPATITIS C
     Dosage: 180 UG QWK SC
     Route: 058
     Dates: start: 20050311, end: 20050411
  3. COPEGUS [Suspect]
     Indication: HEPATITIS C
     Dosage: 1200 MG DAILY PO
     Route: 048
     Dates: start: 20050311, end: 20050411
  4. ZOLOFT [Concomitant]
  5. VISTARIL [Concomitant]
  6. ATIVAN [Concomitant]
  7. OXYCONTIN [Concomitant]

REACTIONS (5)
  - ALANINE AMINOTRANSFERASE INCREASED [None]
  - ASPARTATE AMINOTRANSFERASE INCREASED [None]
  - BLOOD ALKALINE PHOSPHATASE INCREASED [None]
  - NAUSEA [None]
  - VOMITING [None]
